FAERS Safety Report 8104255-1 (Version None)
Quarter: 2012Q1

REPORT INFORMATION
  Report Type: 
  Country: None (occurrence: None)
  Receive Date: 20120130
  Receipt Date: 20120123
  Transmission Date: 20120608
  Serious: Yes (Hospitalization)
  Sender: FDA-Public Use
  Company Number: BE-BAYER-2012-008572

PATIENT
  Age: 83 Year
  Sex: Female

DRUGS (3)
  1. SERENASE [LORAZEPAM] [Concomitant]
  2. TENORMIN [Concomitant]
  3. MOXIFLOXACIN [Suspect]
     Indication: PNEUMONIA
     Dosage: DAILY DOSE 400 MG
     Route: 048
     Dates: start: 20111201, end: 20111201

REACTIONS (1)
  - CLONUS [None]
